FAERS Safety Report 7769826-0 (Version None)
Quarter: 2011Q3

REPORT INFORMATION
  Report Type: 
  Country: None (occurrence: None)
  Receive Date: 20110922
  Receipt Date: 20101229
  Transmission Date: 20111222
  Serious: No
  Sender: FDA-Public Use
  Company Number: US-ASTRAZENECA-2010SE61361

PATIENT
  Age: 30 Year
  Sex: Male

DRUGS (7)
  1. SEROQUEL XR [Suspect]
     Dosage: CUTTING A 200 MG TABLET IN HALF AND TAKING 1 1/2 TABLET
     Route: 048
     Dates: start: 20101201
  2. ROBINUL [Concomitant]
  3. SEROQUEL XR [Suspect]
     Indication: BIPOLAR I DISORDER
     Route: 048
  4. XANAX [Concomitant]
  5. SEROQUEL XR [Suspect]
     Route: 048
     Dates: start: 20100901
  6. CELEXA [Concomitant]
  7. HYDROCODONE [Concomitant]

REACTIONS (6)
  - SLEEP DISORDER [None]
  - INCORRECT DOSE ADMINISTERED [None]
  - RESTLESS LEGS SYNDROME [None]
  - DRUG INEFFECTIVE [None]
  - THERAPEUTIC RESPONSE UNEXPECTED [None]
  - WRONG TECHNIQUE IN DRUG USAGE PROCESS [None]
